FAERS Safety Report 5092299-6 (Version None)
Quarter: 2006Q3

REPORT INFORMATION
  Report Type: 
  Country: None (occurrence: None)
  Receive Date: 20060825
  Receipt Date: 20060818
  Transmission Date: 20061208
  Serious: Yes (Other)
  Sender: FDA-Public Use
  Company Number: HQWYE781921AUG06

PATIENT
  Age: 69 Year
  Sex: Female
  Weight: 56.75 kg

DRUGS (2)
  1. PREMARIN [Suspect]
     Indication: OESTROGEN REPLACEMENT THERAPY
     Dosage: 1 G 1X PER 1 DAY, VAGINAL  : 1 G 2X PER 1 DAY, VAGINAL
     Route: 067
     Dates: end: 20060816
  2. PREMARIN [Suspect]
     Indication: OESTROGEN REPLACEMENT THERAPY
     Dosage: 1 G 1X PER 1 DAY, VAGINAL  : 1 G 2X PER 1 DAY, VAGINAL
     Route: 067
     Dates: start: 20060623

REACTIONS (1)
  - VAGINAL HAEMORRHAGE [None]
